FAERS Safety Report 4437641-1 (Version None)
Quarter: 2004Q3

REPORT INFORMATION
  Report Type: 
  Country: None (occurrence: None)
  Receive Date: 20040827
  Receipt Date: 20040816
  Transmission Date: 20050211
  Serious: Yes (Hospitalization)
  Sender: FDA-Public Use
  Company Number: 2004056929

PATIENT
  Age: 62 Year
  Sex: Female

DRUGS (11)
  1. NORVASC [Suspect]
     Indication: ILL-DEFINED DISORDER
     Dosage: 5 MG (1 D), ORAL
     Route: 048
     Dates: start: 20040727, end: 20040801
  2. VALPROATE SODIUM [Suspect]
     Indication: ILL-DEFINED DISORDER
     Dosage: 800 MG (1 D), ORAL
     Route: 048
     Dates: start: 20040727, end: 20040801
  3. CANDESARTAN  CILEXETIL (CANDESARTAN CILEXETIL) [Suspect]
     Indication: ILL-DEFINED DISORDER
     Dosage: 8 MG (1 D), ORAL
     Route: 048
     Dates: start: 20040727, end: 20040801
  4. IMIDAPRIL (IMIDAPRIL) [Suspect]
     Indication: ILL-DEFINED DISORDER
     Dosage: 5 MG (1 D), ORAL
     Route: 048
     Dates: start: 20040727, end: 20040801
  5. ZOPICLONE (ZOPICLONE) [Concomitant]
  6. ETIZOLAM (ETIZOLAM) [Concomitant]
  7. ARGATROBAN [Concomitant]
  8. EDARAVONE 9EDARAVONE) [Concomitant]
  9. NICARDIPINE HYDROCHLORIDE (NICARDIPINE HYDROCHLORIED) [Concomitant]
  10. ACETYLSALICYLIC ACID [Suspect]
     Indication: ILL-DEFINED DISORDER
     Dosage: 100 MG (1D) , ORAL
     Route: 048
     Dates: start: 20040803, end: 20040801
  11. CEFEPIME HYDROCHLORIDE [Suspect]
     Indication: ILL-DEFINED DISORDER
     Dosage: 1 GRAM (1 D) INTRAVENUOUS
     Route: 042
     Dates: start: 20040722, end: 20040726

REACTIONS (2)
  - SKIN DISCOLOURATION [None]
  - TOXIC EPIDERMAL NECROLYSIS [None]
